FAERS Safety Report 6092998-3 (Version None)
Quarter: 2009Q1

REPORT INFORMATION
  Report Type: 
  Country: None (occurrence: None)
  Receive Date: 20090224
  Receipt Date: 20090210
  Transmission Date: 20090719
  Serious: Yes (Other)
  Sender: FDA-Public Use
  Company Number: 2009S1000484

PATIENT
  Age: 41 Year
  Sex: Female
  Weight: 57.1532 kg

DRUGS (2)
  1. LEVETIRACETAM [Suspect]
     Indication: EPILEPSY
     Dosage: 1000 MG; TWICE A DAY; ORAL
     Route: 048
     Dates: start: 20081128, end: 20081218
  2. ALLEGRA (CON.) [Concomitant]

REACTIONS (5)
  - AURA [None]
  - EYE PENETRATION [None]
  - FACIAL BONES FRACTURE [None]
  - FALL [None]
  - GRAND MAL CONVULSION [None]
